FAERS Safety Report 7904804-X (Version None)
Quarter: 2011Q4

REPORT INFORMATION
  Report Type: 
  Country: None (occurrence: None)
  Receive Date: 20111109
  Receipt Date: 20111026
  Transmission Date: 20120403
  Serious: Yes (Other)
  Sender: FDA-Public Use
  Company Number: PHEH2009US13180

PATIENT
  Sex: Female

DRUGS (17)
  1. PROAIR (FLUTICASONE PROPIONATE) [Concomitant]
  2. AMITIZA [Concomitant]
  3. GLEEVEC [Suspect]
     Indication: CHRONIC MYELOID LEUKAEMIA
     Dosage: 400 MG DAILY
     Route: 048
     Dates: start: 20021201
  4. LISINOPRIL [Concomitant]
  5. CYTOMEL [Concomitant]
  6. BACLOFEN [Concomitant]
  7. MAXAIR [Concomitant]
  8. FUROSEMIDE [Concomitant]
  9. GLEEVEC [Suspect]
     Dosage: 400 MG DAILY
     Route: 048
     Dates: start: 20030101
  10. AVELOX [Concomitant]
  11. TOPAMAX [Concomitant]
  12. CALCIUM [Concomitant]
  13. VITAMIN D [Concomitant]
  14. CYCLOBENZAPRINE [Concomitant]
  15. CYMBALTA [Concomitant]
  16. VITAMIN B-12 [Concomitant]
  17. LEVOXYL [Concomitant]

REACTIONS (2)
  - EYE SWELLING [None]
  - EYE HAEMORRHAGE [None]
